FAERS Safety Report 8282407-8 (Version None)
Quarter: 2012Q2

REPORT INFORMATION
  Report Type: 
  Country: None (occurrence: None)
  Receive Date: 20120410
  Receipt Date: 20120319
  Transmission Date: 20120825
  Serious: Yes (Disabling)
  Sender: FDA-Public Use
  Company Number: 001165809A

PATIENT
  Age: 39 Year
  Sex: Female

DRUGS (1)
  1. MEANINGFUL BEAUTY [Suspect]
     Dosage: DAILY DERMAL APPLICATION
     Dates: start: 20110301, end: 20111201

REACTIONS (6)
  - IMPAIRED DRIVING ABILITY [None]
  - ACTIVITIES OF DAILY LIVING IMPAIRED [None]
  - REACTION TO PRESERVATIVES [None]
  - PERFUME SENSITIVITY [None]
  - REACTION TO COLOURING [None]
  - ARTHRITIS [None]
